FAERS Safety Report 25127505 (Version 1)
Quarter: 2025Q1

REPORT INFORMATION
  Report Type: Spontaneous
  Country: US (occurrence: US)
  Receive Date: 20250327
  Receipt Date: 20250327
  Transmission Date: 20250409
  Serious: Yes (Other)
  Sender: AMGEN
  Company Number: US-AMGEN-USASP2025058104

PATIENT
  Sex: Female

DRUGS (1)
  1. PROLIA [Suspect]
     Active Substance: DENOSUMAB
     Indication: Product used for unknown indication
     Route: 065
     Dates: start: 202502, end: 202503

REACTIONS (1)
  - Compression fracture [Unknown]

NARRATIVE: CASE EVENT DATE: 20250101
